FAERS Safety Report 23810928 (Version 1)
Quarter: 2024Q2

REPORT INFORMATION
  Report Type: Spontaneous
  Country: US (occurrence: US)
  Receive Date: 20240502
  Receipt Date: 20240502
  Transmission Date: 20240716
  Serious: No
  Sender: FDA-Public Use
  Company Number: US-EMERGENT BIOSOLUTIONS-24000047

PATIENT
  Age: 30 Year

DRUGS (7)
  1. CNJ-016 [Suspect]
     Active Substance: HUMAN VACCINIA VIRUS IMMUNE GLOBULIN
     Indication: Monkeypox
     Dosage: UNK, SINGLE INFUSION
     Route: 042
  2. TECOVIRIMAT [Concomitant]
     Active Substance: TECOVIRIMAT
     Indication: Monkeypox
     Dosage: 600 MILLIGRAM, BID
     Route: 048
  3. TECOVIRIMAT [Concomitant]
     Active Substance: TECOVIRIMAT
     Dosage: 600 MILLIGRAM, BID
     Route: 048
  4. TECOVIRIMAT [Concomitant]
     Active Substance: TECOVIRIMAT
     Dosage: 200 MILLIGRAM, 3 DOSES
     Route: 042
  5. TECOVIRIMAT [Concomitant]
     Active Substance: TECOVIRIMAT
     Dosage: 600 MILLIGRAM, BID
     Route: 048
  6. TECOVIRIMAT [Concomitant]
     Active Substance: TECOVIRIMAT
     Dosage: 200 MILLIGRAM, EVERY 12 HOURS
     Route: 042
  7. TECOVIRIMAT [Concomitant]
     Active Substance: TECOVIRIMAT
     Dosage: 200 MILLIGRAM, EVERY 12 HOURS
     Route: 042

REACTIONS (1)
  - Off label use [Unknown]
